FAERS Safety Report 22588960 (Version 1)
Quarter: 2023Q2

REPORT INFORMATION
  Report Type: Spontaneous
  Country: US (occurrence: None)
  Receive Date: 20230609
  Receipt Date: 20230609
  Transmission Date: 20230722
  Serious: Yes (Other)
  Sender: FDA-Public Use
  Company Number: None

PATIENT
  Age: 61 Year
  Sex: Female
  Weight: 81 kg

DRUGS (1)
  1. ZOLEDRONIC ACID [Suspect]
     Active Substance: ZOLEDRONIC ACID
     Indication: Osteoporosis
     Dosage: OTHER QUANTITY : 1 INJECTION(S);?OTHER FREQUENCY : 1 TIME ANNUALLY;?
     Route: 042

REACTIONS (11)
  - Myalgia [None]
  - Headache [None]
  - Muscle spasms [None]
  - Pain [None]
  - Chills [None]
  - Malaise [None]
  - Rash [None]
  - Rash erythematous [None]
  - Rash pruritic [None]
  - Acne [None]
  - Infusion related reaction [None]

NARRATIVE: CASE EVENT DATE: 20230606
